FAERS Safety Report 4534369-4 (Version None)
Quarter: 2004Q4

REPORT INFORMATION
  Report Type: 
  Country: None (occurrence: None)
  Receive Date: 20041214
  Receipt Date: 20041101
  Transmission Date: 20050328
  Serious: Yes (Hospitalization, Other)
  Sender: FDA-Public Use
  Company Number: 2004242579US

PATIENT
  Age: 90 Year
  Sex: Female
  Weight: 48.1 kg

DRUGS (3)
  1. BEXTRA [Suspect]
     Indication: ARTHRITIS
     Dosage: 10 MG, QD, ORAL
     Route: 048
     Dates: start: 20040801
  2. MULTIVITAMIN [Concomitant]
  3. CALCIUM [Concomitant]

REACTIONS (1)
  - MYOCARDIAL INFARCTION [None]
